FAERS Safety Report 4699550-2 (Version None)
Quarter: 2005Q2

REPORT INFORMATION
  Report Type: 
  Country: None (occurrence: None)
  Receive Date: 20050623
  Receipt Date: 20050615
  Transmission Date: 20051028
  Serious: Yes (Life-Threatening, Hospitalization)
  Sender: FDA-Public Use
  Company Number: GBWYE745015JUN05

PATIENT
  Age: 62 Year
  Sex: Female

DRUGS (8)
  1. EFFEXOR XR [Suspect]
     Dosage: 150 MG; 225 MG
     Dates: start: 20030601, end: 20030727
  2. VALPROATE SODIUM [Suspect]
     Dosage: 300 MG 2X PER 1 DAY
     Dates: end: 20030727
  3. BENDROFLUAZIDE (BENDROFLUMETHIAZIDE) [Concomitant]
  4. SPIRONOLACTONE [Concomitant]
  5. MIRTAZAPINE [Concomitant]
  6. SERTRALINE HCL [Concomitant]
  7. LORAZEPAM [Concomitant]
  8. EFFEXOR [Concomitant]

REACTIONS (8)
  - ABASIA [None]
  - CEREBRAL VENTRICLE DILATATION [None]
  - COORDINATION ABNORMAL [None]
  - EYE MOVEMENT DISORDER [None]
  - IMMOBILE [None]
  - MUSCLE RIGIDITY [None]
  - NERVOUS SYSTEM DISORDER [None]
  - NORMAL PRESSURE HYDROCEPHALUS [None]
